FAERS Safety Report 6572096-2 (Version None)
Quarter: 2010Q1

REPORT INFORMATION
  Report Type: 
  Country: None (occurrence: None)
  Receive Date: 20100205
  Receipt Date: 20100125
  Transmission Date: 20100710
  Serious: Yes (Hospitalization)
  Sender: FDA-Public Use
  Company Number: PHEH2009US17892

PATIENT
  Sex: Male
  Weight: 132.43 kg

DRUGS (14)
  1. TASIGNA [Suspect]
     Indication: CHRONIC MYELOID LEUKAEMIA
     Dosage: 400 MG, BID
     Route: 048
     Dates: start: 20091130
  2. TASIGNA [Suspect]
     Dosage: 200 MG, QHS
     Route: 048
     Dates: end: 20091214
  3. ALLOPURINOL [Concomitant]
     Dosage: 300 MG DAILY
     Route: 048
  4. ASPIRIN [Concomitant]
     Dosage: 375 MG DAILY
     Route: 048
  5. FLAXSEED OIL [Concomitant]
     Dosage: 7.5 MG DAILY
     Route: 048
  6. LASIX [Concomitant]
     Dosage: 40 MG DAILY
     Route: 048
  7. NIACIN [Concomitant]
     Dosage: 100 MG DAILY
     Route: 048
  8. LOVAZA [Concomitant]
     Dosage: 1000/5 MG DAILY
     Route: 048
  9. SPIRONOLACTONE [Concomitant]
     Dosage: 25 MG DAILY
     Route: 048
  10. VITAMINE C [Concomitant]
     Dosage: 500 MG DAILY
     Route: 048
  11. ALBUTEROL [Concomitant]
     Dosage: 2.5/ 3 ML
  12. SYNTHROID [Concomitant]
     Dosage: 25 MCG DAILY
     Route: 048
  13. PRAVASTATIN [Concomitant]
     Dosage: 40 MG DAILY
     Route: 048
  14. NADOLOL [Concomitant]
     Route: 048

REACTIONS (5)
  - DRUG INTOLERANCE [None]
  - HEADACHE [None]
  - PHOTOSENSITIVITY REACTION [None]
  - PULMONARY EMBOLISM [None]
  - TREATMENT NONCOMPLIANCE [None]
